FAERS Safety Report 10262109 (Version 2)
Quarter: 2014Q2

REPORT INFORMATION
  Report Type: Spontaneous
  Country: JP (occurrence: JP)
  Receive Date: 20140626
  Receipt Date: 20140630
  Transmission Date: 20141212
  Serious: Yes (Other)
  Sender: FDA-Public Use
  Company Number: JP-GILEAD-2014-0106488

PATIENT
  Age: 64 Year
  Sex: Male

DRUGS (4)
  1. HEPSERA [Suspect]
     Indication: CHRONIC HEPATITIS B
     Dosage: 10MG PER DAY
     Route: 048
     Dates: start: 200301, end: 201404
  2. HEPSERA [Suspect]
     Dosage: 10 MG, QOD
     Route: 048
     Dates: start: 201404
  3. ZEFIX                              /01221401/ [Suspect]
     Indication: CHRONIC HEPATITIS B
     Dosage: 100 MG, QD
     Route: 048
     Dates: end: 201404
  4. ZEFIX                              /01221401/ [Suspect]
     Dosage: 50 MG, QD
     Route: 048
     Dates: start: 201404

REACTIONS (6)
  - Fracture [Not Recovered/Not Resolved]
  - Renal impairment [Unknown]
  - Fanconi syndrome acquired [Unknown]
  - Renal disorder [Unknown]
  - Pain [Unknown]
  - Hypophosphataemia [Unknown]
